FAERS Safety Report 9837349 (Version 1)
Quarter: 2013Q4

REPORT INFORMATION
  Report Type: Spontaneous
  Country: US (occurrence: None)
  Receive Date: 20131121
  Receipt Date: 20131121
  Transmission Date: 20140711
  Serious: No
  Sender: FDA-Public Use
  Company Number: 1000049941

PATIENT
  Age: 55 Year
  Sex: Male

DRUGS (7)
  1. TUDORZA PRESSAIR [Suspect]
     Indication: CHRONIC OBSTRUCTIVE PULMONARY DISEASE
     Dosage: (400 MCG, 2 IN 1 D)
     Route: 055
     Dates: start: 2013, end: 2013
  2. ACCOLATE (ZAFIRLUKAST) [Concomitant]
  3. PREDNISONE [Concomitant]
  4. ASMANEX (MOMETASONE FUROATE) [Concomitant]
  5. SEREVENT (SALMETEROL XINAFOATE) [Concomitant]
  6. OXYGEN [Concomitant]
  7. RESCUE INHALER (NOS) [Concomitant]

REACTIONS (2)
  - Dyspnoea [None]
  - Thinking abnormal [None]
